FAERS Safety Report 8101659-8 (Version None)
Quarter: 2012Q1

REPORT INFORMATION
  Report Type: 
  Country: None (occurrence: None)
  Receive Date: 20120129
  Receipt Date: 20111007
  Transmission Date: 20120608
  Serious: No
  Sender: FDA-Public Use
  Company Number: US-ABBOTT-11P-163-0863324-00

PATIENT
  Sex: Male
  Weight: 113.5 kg

DRUGS (2)
  1. REMICADE [Concomitant]
     Indication: PSORIATIC ARTHROPATHY
     Dates: start: 20110623
  2. HUMIRA [Suspect]
     Indication: PSORIATIC ARTHROPATHY
     Dates: start: 20110415, end: 20110524

REACTIONS (3)
  - PSORIASIS [None]
  - PAIN [None]
  - DRUG INEFFECTIVE [None]
